FAERS Safety Report 15305024 (Version 1)
Quarter: 2018Q3

REPORT INFORMATION
  Report Type: Spontaneous
  Country: IN (occurrence: IN)
  Receive Date: 20180822
  Receipt Date: 20180822
  Transmission Date: 20181010
  Serious: Yes (Other)
  Sender: FDA-Public Use
  Company Number: IN-SUN PHARMACEUTICAL INDUSTRIES LTD-2018R1-169540

PATIENT
  Age: 45 Year
  Sex: Female

DRUGS (8)
  1. CLOZAPINE. [Suspect]
     Active Substance: CLOZAPINE
     Dosage: INCREASED TO 650 MG
     Route: 065
  2. LORAZEPAM. [Concomitant]
     Active Substance: LORAZEPAM
     Indication: INSOMNIA
     Dosage: 2 MG, UNK
     Route: 016
  3. RISPERIDONE. [Concomitant]
     Active Substance: RISPERIDONE
     Indication: SCHIZOAFFECTIVE DISORDER
     Dosage: 4 MG, UNK
     Route: 065
  4. VALPROIC ACID. [Suspect]
     Active Substance: VALPROIC ACID
     Indication: PSYCHOTIC SYMPTOM
     Dosage: 100 MG, UNK
     Route: 065
     Dates: start: 201605
  5. LITHIUM. [Concomitant]
     Active Substance: LITHIUM
     Indication: PSYCHOTIC SYMPTOM
     Dosage: 900 MG, UNK
     Route: 065
  6. QUETIAPINE. [Concomitant]
     Active Substance: QUETIAPINE
     Indication: PSYCHOTIC SYMPTOM
     Dosage: 150 MG, UNK
     Route: 065
  7. CLOZAPINE. [Suspect]
     Active Substance: CLOZAPINE
     Indication: PSYCHOTIC SYMPTOM
     Dosage: 650 MG, UNK
     Route: 065
  8. LITHIUM. [Concomitant]
     Active Substance: LITHIUM
     Indication: MANIA

REACTIONS (1)
  - Hyperammonaemia [Recovering/Resolving]
